FAERS Safety Report 6549752-5 (Version None)
Quarter: 2010Q1

REPORT INFORMATION
  Report Type: 
  Country: None (occurrence: None)
  Receive Date: 20100125
  Receipt Date: 20100113
  Transmission Date: 20100710
  Serious: Yes (Hospitalization, Other)
  Sender: FDA-Public Use
  Company Number: US-CELGENEUS-163-20785-10010868

PATIENT
  Sex: Male
  Weight: 114.8 kg

DRUGS (3)
  1. THALOMID [Suspect]
     Indication: DRUG USE FOR UNKNOWN INDICATION
     Route: 048
  2. CAPECITABINE [Suspect]
     Route: 048
     Dates: start: 20090929
  3. ERLOTINIB [Suspect]
     Route: 048

REACTIONS (5)
  - BLOOD ALBUMIN DECREASED [None]
  - BLOOD COUNT ABNORMAL [None]
  - CONSTIPATION [None]
  - METASTASES TO PANCREAS [None]
  - OEDEMA PERIPHERAL [None]
